FAERS Safety Report 9048709 (Version 1)
Quarter: 2013Q1

REPORT INFORMATION
  Report Type: Spontaneous
  Country: US (occurrence: None)
  Receive Date: 20130130
  Receipt Date: 20130130
  Transmission Date: 20140127
  Serious: No
  Sender: FDA-Public Use
  Company Number: None

PATIENT
  Age: 21 Year
  Sex: Female
  Weight: 77.11 kg

DRUGS (1)
  1. NEXAPLON [Suspect]
     Indication: CONTRACEPTION
     Route: 058
     Dates: start: 20121011, end: 20121021

REACTIONS (8)
  - Fatigue [None]
  - Vomiting [None]
  - Myalgia [None]
  - Arthralgia [None]
  - Neck pain [None]
  - Musculoskeletal pain [None]
  - Chest pain [None]
  - Pain in extremity [None]
